FAERS Safety Report 9199838 (Version 1)
Quarter: 2013Q1

REPORT INFORMATION
  Report Type: Spontaneous
  Country: US (occurrence: US)
  Receive Date: 20130329
  Receipt Date: 20130329
  Transmission Date: 20140127
  Serious: Yes (Other)
  Sender: FDA-Public Use
  Company Number: US-ELI_LILLY_AND_COMPANY-US201303007316

PATIENT
  Sex: Female

DRUGS (5)
  1. FORTEO [Suspect]
     Indication: OSTEOPOROSIS
     Dosage: UNK, QD
     Dates: start: 201209
  2. PREDNISONE [Concomitant]
     Dosage: 25 MG, QD
  3. ARAVA [Concomitant]
  4. METHOTREXATE [Concomitant]
     Dosage: UNK, WEEKLY (1/W)
  5. FOLIC ACID [Concomitant]
     Dosage: UNK, QD

REACTIONS (1)
  - Spinal osteoarthritis [Unknown]
